FAERS Safety Report 12108566 (Version 18)
Quarter: 2017Q2

REPORT INFORMATION
  Report Type: Report from Study
  Country: CA (occurrence: CA)
  Receive Date: 20160224
  Receipt Date: 20170413
  Transmission Date: 20170829
  Serious: Yes (Other)
  Sender: FDA-Public Use
  Company Number: CA-BRISTOL-MYERS SQUIBB COMPANY-BMS-2016-000580

PATIENT
  Age: 56 Year
  Sex: Female

DRUGS (4)
  1. VENLAFAXINE [Concomitant]
     Active Substance: VENLAFAXINE HYDROCHLORIDE
     Indication: PRODUCT USED FOR UNKNOWN INDICATION
     Dosage: UNK
     Route: 065
  2. ABATACEPT [Suspect]
     Active Substance: ABATACEPT
     Indication: RHEUMATOID ARTHRITIS
     Dosage: 125 MG, QWK
     Route: 058
     Dates: start: 20151221
  3. PREDNISONE. [Concomitant]
     Active Substance: PREDNISONE
     Indication: PRODUCT USED FOR UNKNOWN INDICATION
     Dosage: UNK
     Route: 065
  4. AMILORIDE [Concomitant]
     Active Substance: AMILORIDE
     Indication: PRODUCT USED FOR UNKNOWN INDICATION
     Dosage: UNK
     Route: 065

REACTIONS (21)
  - Arthropathy [Unknown]
  - Cyst [Unknown]
  - Nerve compression [Unknown]
  - Balance disorder [Unknown]
  - Ear infection [Recovering/Resolving]
  - Nervous system disorder [Unknown]
  - Arthralgia [Not Recovered/Not Resolved]
  - Fall [Unknown]
  - Mobility decreased [Unknown]
  - Local swelling [Unknown]
  - Contusion [Unknown]
  - Oropharyngeal pain [Unknown]
  - Joint swelling [Unknown]
  - Respiratory tract infection [Recovering/Resolving]
  - Muscular weakness [Unknown]
  - Heart rate increased [Unknown]
  - Drug dose omission [Unknown]
  - Carpal tunnel syndrome [Unknown]
  - Pain in extremity [Unknown]
  - Malaise [Unknown]
  - Productive cough [Unknown]

NARRATIVE: CASE EVENT DATE: 20151230
